FAERS Safety Report 8343788-X (Version None)
Quarter: 2012Q2

REPORT INFORMATION
  Report Type: 
  Country: None (occurrence: None)
  Receive Date: 20120508
  Receipt Date: 20100830
  Transmission Date: 20120825
  Serious: Yes (Hospitalization, Disabling)
  Sender: FDA-Public Use
  Company Number: US-BAYER-201014020NA

PATIENT
  Age: 17 Year
  Sex: Female
  Weight: 59.091 kg

DRUGS (4)
  1. YAZ [Suspect]
     Indication: CONTRACEPTION
     Dosage: 1 DF, QD
     Route: 048
     Dates: start: 20071107, end: 20080206
  2. AMBIEN [Concomitant]
     Indication: SLEEP DISORDER
     Dosage: 5 MG, PRN
     Route: 048
     Dates: start: 20080212
  3. IBUPROFEN [Concomitant]
     Dosage: UNK
  4. OXYCODONE HCL AND ACETAMINOPHEN [Concomitant]
     Dosage: 7.5 MG, QID
     Route: 048

REACTIONS (7)
  - CONTUSION [None]
  - PAIN IN EXTREMITY [None]
  - THROMBOSIS [None]
  - OEDEMA PERIPHERAL [None]
  - BACK PAIN [None]
  - ABASIA [None]
  - DEEP VEIN THROMBOSIS [None]
